FAERS Safety Report 7246972-1 (Version None)
Quarter: 2011Q1

REPORT INFORMATION
  Report Type: 
  Country: None (occurrence: None)
  Receive Date: 20110127
  Receipt Date: 20110125
  Transmission Date: 20110831
  Serious: Yes (Death)
  Sender: FDA-Public Use
  Company Number: KR-ABBOTT-11P-090-0699663-00

PATIENT
  Age: 40 Year
  Sex: Male

DRUGS (10)
  1. 3TC/AZT [Concomitant]
     Indication: ANTIRETROVIRAL THERAPY
     Dosage: 2 TABLETS DAILY
     Dates: start: 20100309, end: 20100624
  2. ORFIL SR [Concomitant]
     Indication: CONVULSION
     Route: 048
     Dates: start: 20100601, end: 20100623
  3. RAMEZOL [Concomitant]
     Indication: PROPHYLAXIS
     Route: 048
     Dates: start: 20100531, end: 20100623
  4. KALETRA [Suspect]
     Indication: HIV INFECTION
     Route: 048
     Dates: start: 20100309, end: 20100623
  5. CACEPIN [Concomitant]
     Indication: PRODUCT USED FOR UNKNOWN INDICATION
     Route: 048
     Dates: start: 20100526, end: 20100604
  6. CACEPIN [Concomitant]
     Route: 048
     Dates: start: 20100605, end: 20100623
  7. RAMEZOL [Concomitant]
     Indication: CHEMOTHERAPY
  8. SULFAMETHOXAZOLE AND TRIMETHOPRIM [Concomitant]
     Indication: PNEUMONIA
     Dosage: 9 TABLETS DAILY
     Route: 048
     Dates: start: 20100401, end: 20100517
  9. SULFAMETHOXAZOLE AND TRIMETHOPRIM [Concomitant]
     Indication: PROPHYLAXIS
     Dosage: 1 TABLET DAILY
     Route: 048
     Dates: start: 20100309, end: 20100317
  10. RAMEZOL [Concomitant]
     Indication: GASTRIC DISORDER

REACTIONS (5)
  - LYMPHOMA [None]
  - INTRACRANIAL PRESSURE INCREASED [None]
  - NAUSEA [None]
  - HEADACHE [None]
  - VOMITING PROJECTILE [None]
